FAERS Safety Report 5508960-2 (Version None)
Quarter: 2007Q4

REPORT INFORMATION
  Report Type: 
  Country: None (occurrence: None)
  Receive Date: 20071107
  Receipt Date: 20071029
  Transmission Date: 20080405
  Serious: Yes (Death)
  Sender: FDA-Public Use
  Company Number: JP-MERCK-0710USA01327

PATIENT
  Age: 93 Year
  Sex: Female
  Weight: 40 kg

DRUGS (12)
  1. STROMECTOL [Suspect]
     Indication: ACARODERMATITIS
     Route: 048
     Dates: start: 20070919, end: 20070919
  2. STROMECTOL [Suspect]
     Route: 048
     Dates: start: 20070926, end: 20070926
  3. PREMINENT [Concomitant]
     Route: 048
  4. TAKEPRON [Concomitant]
     Route: 065
  5. SIGMART [Concomitant]
     Route: 065
  6. EBRANTIL [Concomitant]
     Route: 048
  7. GASMOTIN [Concomitant]
     Route: 048
  8. PAXIL [Concomitant]
     Route: 048
  9. UBRETID [Concomitant]
     Route: 065
  10. THYRADIN [Concomitant]
     Route: 048
     Dates: start: 20070912
  11. EURAX [Concomitant]
     Route: 061
     Dates: start: 20070926
  12. ALLEGRA [Concomitant]
     Route: 048
     Dates: start: 20070926

REACTIONS (2)
  - CARDIAC FAILURE [None]
  - PNEUMONIA [None]
